FAERS Safety Report 11813160 (Version 1)
Quarter: 2015Q4

REPORT INFORMATION
  Report Type: Spontaneous
  Country: CA (occurrence: CA)
  Receive Date: 20151209
  Receipt Date: 20151209
  Transmission Date: 20160305
  Serious: Yes (Death)
  Sender: FDA-Public Use
  Company Number: CA-TEVA-613968ACC

PATIENT
  Age: 79 Year
  Sex: Female
  Weight: 67 kg

DRUGS (13)
  1. FRAGMIN [Concomitant]
     Active Substance: DALTEPARIN SODIUM
     Dosage: SOLUTION INTRAVENOUS
  2. FOLIC ACID. [Concomitant]
     Active Substance: FOLIC ACID
  3. XARELTO [Suspect]
     Active Substance: RIVAROXABAN
     Indication: HIP SURGERY
     Dosage: 10 MILLIGRAM DAILY;
     Route: 065
  4. IRON [Concomitant]
     Active Substance: IRON
  5. METHOTREXATE [Concomitant]
     Active Substance: METHOTREXATE
  6. SIMVASTATIN. [Concomitant]
     Active Substance: SIMVASTATIN
  7. VITAMIN D [Concomitant]
     Active Substance: CHOLECALCIFEROL
  8. XARELTO [Suspect]
     Active Substance: RIVAROXABAN
     Indication: ANTICOAGULANT THERAPY
  9. TRIAMTERENE. [Concomitant]
     Active Substance: TRIAMTERENE
  10. IBUPROFEN. [Suspect]
     Active Substance: IBUPROFEN
     Indication: PAIN
     Dosage: 400.0 MILLIGRAM
     Route: 065
  11. FISH OIL [Concomitant]
     Active Substance: FISH OIL
  12. IBUPROFEN. [Suspect]
     Active Substance: IBUPROFEN
     Indication: HIP SURGERY
     Route: 065
  13. FISH OIL [Concomitant]
     Active Substance: FISH OIL

REACTIONS (5)
  - Haemoglobin decreased [Fatal]
  - Melaena [Fatal]
  - Haematemesis [Fatal]
  - Unresponsive to stimuli [Fatal]
  - Syncope [Fatal]
